FAERS Safety Report 4376159-1 (Version None)
Quarter: 2004Q2

REPORT INFORMATION
  Report Type: 
  Country: None (occurrence: None)
  Receive Date: 20040609
  Receipt Date: 20040609
  Transmission Date: 20050107
  Serious: Yes (Hospitalization)
  Sender: FDA-Public Use
  Company Number: None

PATIENT
  Age: 54 Year
  Sex: Female
  Weight: 48.6256 kg

DRUGS (1)
  1. GEMCITABINE [Suspect]
     Dosage: 1660 MG Q WK X 2 WKS REST WEEK RESTART CYCLE
     Dates: start: 20040314

REACTIONS (2)
  - INTESTINAL STENOSIS [None]
  - POST PROCEDURAL COMPLICATION [None]
